FAERS Safety Report 6366617-2 (Version None)
Quarter: 2009Q3

REPORT INFORMATION
  Report Type: 
  Country: None (occurrence: None)
  Receive Date: 20090921
  Receipt Date: 20090907
  Transmission Date: 20100115
  Serious: Yes (Hospitalization)
  Sender: FDA-Public Use
  Company Number: PHHY2009IT18527

PATIENT
  Sex: Male
  Weight: 106 kg

DRUGS (19)
  1. RAD 666 RAD+TAB [Suspect]
     Indication: RENAL TRANSPLANT
     Dosage: 1.25 MG/DAY
     Route: 048
     Dates: start: 20051216, end: 20090518
  2. RAD 666 RAD+TAB [Suspect]
     Indication: IMMUNOSUPPRESSION
     Dosage: 1 MG/DAY
     Route: 048
     Dates: start: 20090603
  3. AZATHIOPRINE [Concomitant]
     Indication: RENAL TRANSPLANT
     Dosage: 25 MG/DAY
     Dates: start: 20070123
  4. PYRIDOXINE [Concomitant]
  5. METOPROLOL TARTRATE [Concomitant]
     Dosage: 50 MG, UNK
     Route: 048
  6. OMEPRAZOLE [Concomitant]
     Dosage: 20 MG, UNK
     Route: 048
  7. CYANOCOBALAMIN [Concomitant]
  8. CALCIUM FOLINATE [Concomitant]
     Dosage: 7.5 MG, UNK
     Route: 048
  9. RAMIPRIL [Concomitant]
     Dosage: 2.5 MG, UNK
     Route: 048
  10. POTASSIUM CANRENOATE [Concomitant]
     Dosage: 100 MG, UNK
     Route: 048
  11. NITROGLYCERIN [Concomitant]
     Dosage: 10 MG, UNK
     Route: 062
  12. EPOETIN BETA [Concomitant]
     Dosage: 10 U/L
  13. SIMVASTATIN [Concomitant]
     Route: 048
  14. INSULIN [Concomitant]
  15. CALCITRIOL [Concomitant]
  16. ESKIM [Concomitant]
     Dosage: 2000MG DAILY
     Route: 048
  17. LASIX [Concomitant]
     Dosage: 125 MG, UNK
     Route: 048
  18. ASPIRIN [Concomitant]
     Dosage: 100 MG, 1 POSOLOGICAL UNIT
     Route: 048
  19. SANDIMMUNE [Concomitant]
     Dosage: 180 MG, UNK
     Route: 048

REACTIONS (5)
  - CHEST PAIN [None]
  - ERYTHEMA INFECTIOSUM [None]
  - HYPERURICAEMIA [None]
  - PANCYTOPENIA [None]
  - PYREXIA [None]
